FAERS Safety Report 8376428-4 (Version None)
Quarter: 2012Q2

REPORT INFORMATION
  Report Type: 
  Country: None (occurrence: None)
  Receive Date: 20120522
  Receipt Date: 20120511
  Transmission Date: 20120825
  Serious: Yes (Other)
  Sender: FDA-Public Use
  Company Number: PHBS2001AU12456

PATIENT
  Sex: Female

DRUGS (4)
  1. CELEBREX [Concomitant]
     Indication: BACK PAIN
     Dosage: 200 MG, PER DAY
     Route: 048
     Dates: start: 20011101
  2. VALPROATE SODIUM [Concomitant]
     Indication: AFFECTIVE DISORDER
     Dosage: 1600 MG/D
     Route: 048
     Dates: start: 20010601
  3. CLONAZEPAM [Concomitant]
     Indication: AGITATION
     Dosage: O.5 -1 MG/ PRN
     Route: 048
  4. CLOZARIL [Suspect]
     Indication: PSYCHOTIC DISORDER
     Dosage: 100 MG
     Route: 048
     Dates: start: 20011119, end: 20120510

REACTIONS (13)
  - TROPONIN INCREASED [None]
  - DYSPNOEA [None]
  - PERICARDIAL EFFUSION [None]
  - FATIGUE [None]
  - INFLUENZA LIKE ILLNESS [None]
  - ELECTROCARDIOGRAM QRS COMPLEX PROLONGED [None]
  - PYREXIA [None]
  - EOSINOPHILIA [None]
  - DECREASED APPETITE [None]
  - ARTHRALGIA [None]
  - MYOCARDITIS [None]
  - TACHYCARDIA [None]
  - MALAISE [None]
